FAERS Safety Report 16942983 (Version 9)
Quarter: 2020Q1

REPORT INFORMATION
  Report Type: Report from Study
  Country: US (occurrence: US)
  Receive Date: 20191021
  Receipt Date: 20200306
  Transmission Date: 20200409
  Serious: Yes (Hospitalization)
  Sender: FDA-Public Use
  Company Number: US-ACTELION-A-NJ2019-195287

PATIENT
  Age: 77 Year
  Sex: Male
  Weight: 72.56 kg

DRUGS (3)
  1. TYVASO [Concomitant]
     Active Substance: TREPROSTINIL
     Dosage: 18 PUFF, TID
  2. ESBRIET [Concomitant]
     Active Substance: PIRFENIDONE
     Dosage: UNK, TID
  3. OPSUMIT [Suspect]
     Active Substance: MACITENTAN
     Indication: PULMONARY HYPERTENSION
     Dosage: 10 MG, QD
     Route: 048
     Dates: start: 20190816

REACTIONS (4)
  - Unevaluable event [Unknown]
  - Pneumothorax [Unknown]
  - Device connection issue [Unknown]
  - Chest tube insertion [Not Recovered/Not Resolved]

NARRATIVE: CASE EVENT DATE: 20191008
